FAERS Safety Report 20208729 (Version 1)
Quarter: 2021Q4

REPORT INFORMATION
  Report Type: Spontaneous
  Country: CO (occurrence: CO)
  Receive Date: 20211220
  Receipt Date: 20211220
  Transmission Date: 20220303
  Serious: No
  Sender: FDA-Public Use
  Company Number: CO-PFIZER INC-2020505881

PATIENT

DRUGS (1)
  1. GENOTROPIN [Suspect]
     Active Substance: SOMATROPIN
     Dosage: 0.8 MG
     Route: 058
     Dates: end: 20201213

REACTIONS (3)
  - Device information output issue [Unknown]
  - Drug dose omission by device [Unknown]
  - Product prescribing error [Unknown]

NARRATIVE: CASE EVENT DATE: 20201213
